FAERS Safety Report 15775842 (Version 2)
Quarter: 2019Q1

REPORT INFORMATION
  Report Type: Spontaneous
  Country: CN (occurrence: CN)
  Receive Date: 20181231
  Receipt Date: 20190228
  Transmission Date: 20190417
  Serious: Yes (Other)
  Sender: FDA-Public Use
  Company Number: CN-ROCHE-2237204

PATIENT
  Age: 52 Year
  Sex: Female

DRUGS (2)
  1. CRIZOTINIB [Suspect]
     Active Substance: CRIZOTINIB
     Indication: LUNG ADENOCARCINOMA
     Dosage: QD
     Route: 065
     Dates: start: 20151128, end: 20151228
  2. AVASTIN [Suspect]
     Active Substance: BEVACIZUMAB
     Indication: LUNG ADENOCARCINOMA
     Dosage: EVERY 3 WEEKS
     Route: 065
     Dates: start: 20150712, end: 201511

REACTIONS (7)
  - Gastrointestinal toxicity [Unknown]
  - Asthenia [Unknown]
  - Hypoaesthesia [Recovering/Resolving]
  - Bone marrow failure [Unknown]
  - Hepatic function abnormal [Unknown]
  - Decreased appetite [Unknown]
  - Headache [Unknown]
